FAERS Safety Report 7042809-4 (Version None)
Quarter: 2010Q4

REPORT INFORMATION
  Report Type: 
  Country: None (occurrence: None)
  Receive Date: 20101013
  Receipt Date: 20100423
  Transmission Date: 20110411
  Serious: No
  Sender: FDA-Public Use
  Company Number: US-ASTRAZENECA-2010SE18269

PATIENT
  Sex: Male

DRUGS (2)
  1. SYMBICORT [Suspect]
     Indication: ASTHMA
     Dosage: TWO-FOUR PUFFS
     Route: 055
     Dates: start: 20080101
  2. SYMBICORT [Suspect]
     Indication: CHRONIC OBSTRUCTIVE PULMONARY DISEASE
     Dosage: TWO-FOUR PUFFS
     Route: 055
     Dates: start: 20080101

REACTIONS (3)
  - ASTHMA [None]
  - DRUG INEFFECTIVE [None]
  - FALL [None]
